FAERS Safety Report 9937254 (Version 3)
Quarter: 2014Q2

REPORT INFORMATION
  Report Type: Spontaneous
  Country: US (occurrence: US)
  Receive Date: 20140302
  Receipt Date: 20140402
  Transmission Date: 20141212
  Serious: Yes (Other)
  Sender: FDA-Public Use
  Company Number: US-GE HEALTHCARE MEDICAL DIAGNOSTICS-OSCN-PR-0906S-0307

PATIENT
  Age: 35 Year
  Sex: Female

DRUGS (5)
  1. OMNISCAN [Suspect]
     Indication: DYSPNOEA
     Route: 042
     Dates: start: 20061023, end: 20061023
  2. OMNISCAN [Suspect]
     Indication: BLOOD PRESSURE INCREASED
  3. PROCRIT [Concomitant]
     Indication: ANAEMIA MACROCYTIC
  4. NEURONTIN [Concomitant]
     Indication: NEUROPATHY PERIPHERAL
  5. VICODIN [Concomitant]
     Indication: PAIN

REACTIONS (1)
  - Nephrogenic systemic fibrosis [Not Recovered/Not Resolved]
